FAERS Safety Report 14098242 (Version 4)
Quarter: 2020Q4

REPORT INFORMATION
  Report Type: Spontaneous
  Country: US (occurrence: US)
  Receive Date: 20171017
  Receipt Date: 20201223
  Transmission Date: 20210113
  Serious: No
  Sender: FDA-Public Use
  Company Number: US-PFIZER INC-2017440015

PATIENT
  Age: 47 Year
  Sex: Female
  Weight: 63.49 kg

DRUGS (32)
  1. XELJANZ XR [Suspect]
     Active Substance: TOFACITINIB CITRATE
     Indication: RHEUMATOID ARTHRITIS
     Dosage: 11 MG, 1X/DAY
     Route: 048
     Dates: start: 201705, end: 201708
  2. SINGULAIR [Concomitant]
     Active Substance: MONTELUKAST SODIUM
     Indication: HYPERSENSITIVITY
  3. CYCLOBENZAPRINE. [Concomitant]
     Active Substance: CYCLOBENZAPRINE
     Indication: MUSCLE RELAXANT THERAPY
     Dosage: 7.5 MG, AS NEEDED
     Dates: start: 2017
  4. HYDROCODONE [Concomitant]
     Active Substance: HYDROCODONE
     Indication: PAIN
     Dosage: UP TO 3 TABLETS (DF) IN 24 HOURS, AS NEEDED
  5. DHEA [Concomitant]
     Active Substance: PRASTERONE
     Indication: RHEUMATOID ARTHRITIS
     Dosage: 50 MG, ONCE DAILY (IN THE MORNING)
     Dates: start: 2009
  6. VITAMIN C [Concomitant]
     Active Substance: ASCORBIC ACID
     Indication: RHEUMATOID ARTHRITIS
     Dosage: 2000 MG, ONCE DAILY
     Dates: start: 2009
  7. ASTELIN [Concomitant]
     Active Substance: AZELASTINE HYDROCHLORIDE
     Indication: HYPERSENSITIVITY
     Dosage: 4 SPRAY (DF) (2 SPRAY EACH NOSTRIL), TWICE DAILY
     Route: 045
     Dates: start: 2015
  8. MILK THISTLE [Concomitant]
     Active Substance: DIETARY SUPPLEMENT\HERBALS\MILK THISTLE
     Indication: LIVER DISORDER
     Dosage: 1 TABLET (DF), ONCE DAILY
     Dates: start: 2010
  9. METHOCARBAMOL. [Concomitant]
     Active Substance: METHOCARBAMOL
     Indication: MUSCLE RELAXANT THERAPY
     Dosage: 750 MG, AS NEEDED
     Dates: start: 2010
  10. GLUCOSAMINE CHONDROITIN [Concomitant]
     Active Substance: CHONDROITIN SULFATE (BOVINE)\GLUCOSAMINE HYDROCHLORIDE
     Indication: RHEUMATOID ARTHRITIS
     Dosage: 2 TO 3 CAPSULES (DF), ONCE DAILY
     Dates: start: 2009
  11. METHOTREXATE. [Concomitant]
     Active Substance: METHOTREXATE
     Indication: RHEUMATOID ARTHRITIS
     Dosage: 25 MG, WEEKLY
     Dates: start: 2010
  12. FLONASE [Concomitant]
     Active Substance: FLUTICASONE PROPIONATE
     Indication: HYPERSENSITIVITY
     Dosage: 2 SPRAY (DF) (1 SPRAY EACH NOSTRIL), ONCE DAILY
     Route: 045
     Dates: start: 2015
  13. VITAMIN D [Concomitant]
     Active Substance: VITAMIN D NOS
     Indication: RHEUMATOID ARTHRITIS
     Dosage: 5000 MG, ONCE DAILY
     Dates: start: 2010
  14. XELJANZ XR [Suspect]
     Active Substance: TOFACITINIB CITRATE
     Dosage: 11 MG, ONCE DAILY
     Route: 048
     Dates: start: 201708
  15. SYNTHROID [Concomitant]
     Active Substance: LEVOTHYROXINE SODIUM
     Indication: HYPOTHYROIDISM
     Dosage: 62.5 UG, ONCE DAILY
     Dates: start: 201104
  16. LEUCOVORIN CALCIUM. [Concomitant]
     Active Substance: LEUCOVORIN CALCIUM
     Indication: ANAEMIA PROPHYLAXIS
     Dosage: 20 MG, WEEKLY (ON TUESDAYS)
     Dates: start: 2016, end: 201804
  17. CRANBERRY. [Concomitant]
     Active Substance: CRANBERRY
     Indication: PROPHYLAXIS URINARY TRACT INFECTION
     Dosage: 1 TO 2 PILLS (DF), ONCE DAILY (IN MORNING)
     Dates: start: 2012
  18. CALCIUM [Concomitant]
     Active Substance: CALCIUM
     Indication: RHEUMATOID ARTHRITIS
     Dosage: 600 MG, ONCE DAILY (IN THE EVENING)
     Dates: start: 2015
  19. NORTRIPTYLINE HYDROCHLORIDE. [Concomitant]
     Active Substance: NORTRIPTYLINE HYDROCHLORIDE
     Indication: SLEEP DISORDER
     Dosage: 50 MG, ONCE DAILY (AT BED TIME)
     Dates: start: 2016
  20. ZYRTEC [Concomitant]
     Active Substance: CETIRIZINE HYDROCHLORIDE
     Indication: HYPERSENSITIVITY
     Dosage: 10 MG, ONCE DAILY
     Dates: start: 2015, end: 201802
  21. L-LYSINE [Concomitant]
     Active Substance: LYSINE
     Indication: RHEUMATOID ARTHRITIS
     Dosage: 1 TABLET (DF), DAILY
     Dates: start: 2017
  22. METHOCARBAMOL. [Concomitant]
     Active Substance: METHOCARBAMOL
     Indication: BACK PAIN
     Dosage: UNK
     Dates: start: 2016, end: 201701
  23. RESTASIS [Concomitant]
     Active Substance: CYCLOSPORINE
     Indication: DRY EYE
     Dosage: 2 DROPS (GTT) (1 DROP EACH EYE), TWICE DAILY
     Dates: start: 201402
  24. FISH OIL [Concomitant]
     Active Substance: FISH OIL
     Indication: RHEUMATOID ARTHRITIS
     Dosage: 1000 MG, TWICE DAILY
     Dates: start: 2009
  25. TURMERIC [Concomitant]
     Active Substance: HERBALS\TURMERIC
     Indication: RHEUMATOID ARTHRITIS
     Dosage: 2 CAPSULES (DF), TWICE DAILY
     Dates: start: 2017
  26. CENTRUM SILVER WOMEN 50+ [Concomitant]
     Active Substance: MINERALS\VITAMINS
     Indication: ROUTINE HEALTH MAINTENANCE
     Dosage: 1 TABLET (DF), ONCE DAILY (IN THE EVENING)
     Dates: start: 2016
  27. SINGULAIR [Concomitant]
     Active Substance: MONTELUKAST SODIUM
     Indication: ASTHMA
     Dosage: 10 MG, ONCE DAILY
     Dates: start: 2016
  28. CYCLOBENZAPRINE. [Concomitant]
     Active Substance: CYCLOBENZAPRINE
     Indication: PAIN
  29. GLUTATHIONE PLUS [Concomitant]
     Indication: ANTIOXIDANT THERAPY
     Dosage: 1 CAPSULE (DF), DAILY
     Dates: start: 2015
  30. PROGESTERONE. [Concomitant]
     Active Substance: PROGESTERONE
     Indication: RHEUMATOID ARTHRITIS
     Dosage: 500 MG, ONCE DAILY
     Dates: start: 2016
  31. ZANTAC [Concomitant]
     Active Substance: RANITIDINE HYDROCHLORIDE
     Indication: HYPERSENSITIVITY
     Dosage: 10 MG, TWICE DAILY
     Dates: start: 2016, end: 201802
  32. TRAMADOL. [Concomitant]
     Active Substance: TRAMADOL
     Indication: PAIN
     Dosage: 1 TO 2 THRICE DAILY, AS NEEDED

REACTIONS (9)
  - Cough [Recovered/Resolved]
  - Wheezing [Recovered/Resolved]
  - Dyspnoea [Recovered/Resolved]
  - Upper respiratory tract infection [Recovered/Resolved]
  - Malaise [Recovered/Resolved]
  - COVID-19 [Unknown]
  - Respiratory tract congestion [Recovered/Resolved]
  - Dysphonia [Recovered/Resolved]
  - Fatigue [Recovered/Resolved]

NARRATIVE: CASE EVENT DATE: 201708
